FAERS Safety Report 4598002-8 (Version None)
Quarter: 2005Q2

REPORT INFORMATION
  Report Type: 
  Country: None (occurrence: None)
  Receive Date: 20050209
  Receipt Date: 20040908
  Transmission Date: 20051028
  Serious: Yes (Disabling)
  Sender: FDA-Public Use
  Company Number: 380177

PATIENT
  Sex: Female

DRUGS (1)
  1. TORADOL [Suspect]

REACTIONS (2)
  - POST PROCEDURAL HAEMATOMA [None]
  - TREMOR [None]
